FAERS Safety Report 10340436 (Version 1)
Quarter: 2014Q3

REPORT INFORMATION
  Report Type: Report from Study
  Country: AU (occurrence: AU)
  Receive Date: 20140724
  Receipt Date: 20140724
  Transmission Date: 20150326
  Serious: Yes (Other)
  Sender: FDA-Public Use
  Company Number: AU-BAXTER-2014BAX039579

PATIENT

DRUGS (1)
  1. PRISM0CAL B22 [Suspect]
     Active Substance: BICARBONATE ION\CHLORIDE ION\DEXTROSE\LACTIC ACID\MAGNESIUM\POTASSIUM
     Indication: HAEMODIALYSIS
     Route: 065

REACTIONS (1)
  - Convulsion [Unknown]
